FAERS Safety Report 11368596 (Version 2)
Quarter: 2015Q3

REPORT INFORMATION
  Report Type: Report from Study
  Country: US (occurrence: US)
  Receive Date: 20150812
  Receipt Date: 20150828
  Transmission Date: 20151125
  Serious: No
  Sender: FDA-Public Use
  Company Number: PHEH2015US015244

PATIENT
  Sex: Female

DRUGS (1)
  1. COSENTYX [Suspect]
     Active Substance: SECUKINUMAB
     Indication: PSORIASIS
     Dosage: 300 MG, QW
     Route: 058
     Dates: start: 20150722

REACTIONS (5)
  - Skin exfoliation [Unknown]
  - Pain [Unknown]
  - Skin fissures [Unknown]
  - Musculoskeletal stiffness [Unknown]
  - Psoriasis [Unknown]
